FAERS Safety Report 5850184-3 (Version None)
Quarter: 2008Q3

REPORT INFORMATION
  Report Type: 
  Country: None (occurrence: None)
  Receive Date: 20080819
  Receipt Date: 20080805
  Transmission Date: 20090109
  Serious: No
  Sender: FDA-Public Use
  Company Number: US-BOEHRINGER INGELHEIM GMBH, GERMANY-2008-BP-12311BP

PATIENT
  Age: 67 Year
  Sex: Female

DRUGS (1)
  1. ZANTAC 75 [Suspect]
     Route: 048
     Dates: start: 20080726

REACTIONS (1)
  - CONSTIPATION [None]
